FAERS Safety Report 5140695-0 (Version None)
Quarter: 2006Q4

REPORT INFORMATION
  Report Type: 
  Country: None (occurrence: None)
  Receive Date: 20061025
  Receipt Date: 20061020
  Transmission Date: 20070319
  Serious: Yes (Life-Threatening, Hospitalization)
  Sender: FDA-Public Use
  Company Number: GB9176218SEP2002

PATIENT
  Age: 52 Year
  Sex: Female

DRUGS (11)
  1. RAPAMUNE [Suspect]
     Indication: IMMUNOSUPPRESSION
     Dosage: 3 MG 1X PER 1 DAY
     Route: 048
     Dates: start: 20020617, end: 20020917
  2. RAPAMUNE [Suspect]
     Indication: RENAL TRANSPLANT
     Dosage: 3 MG 1X PER 1 DAY
     Route: 048
     Dates: start: 20020617, end: 20020917
  3. ASPIRIN [Concomitant]
  4. CANDESARTAN (CANDESARTAN) [Concomitant]
  5. LEVOTHYROXINE SODIUM [Concomitant]
  6. NIFEDIPINE [Concomitant]
  7. GTN (GLYCERYL TRINITRATE) [Concomitant]
  8. ATORVASTATIN CALCIUM [Concomitant]
  9. INSULATARD HUMAN (HUMAN ISOPHANE HUMAN SEMISYNTHETIC) [Concomitant]
  10. ACTRAPID PENFILL (INSULIN HUMAN) [Concomitant]
  11. PREDNISOLONE [Concomitant]

REACTIONS (12)
  - BLOOD ALKALINE PHOSPHATASE INCREASED [None]
  - BLOOD BICARBONATE DECREASED [None]
  - BLOOD CREATININE INCREASED [None]
  - BLOOD GLUCOSE INCREASED [None]
  - HAEMATOCRIT DECREASED [None]
  - HAEMOGLOBIN DECREASED [None]
  - LYMPHOCYTE COUNT DECREASED [None]
  - MEAN CELL HAEMOGLOBIN DECREASED [None]
  - MONOCYTE COUNT DECREASED [None]
  - PNEUMONITIS [None]
  - PULMONARY HAEMORRHAGE [None]
  - RED BLOOD CELL COUNT DECREASED [None]
